FAERS Safety Report 23484174 (Version 3)
Quarter: 2024Q4

REPORT INFORMATION
  Report Type: Report from Study
  Country: US (occurrence: US)
  Receive Date: 20240206
  Receipt Date: 20241205
  Transmission Date: 20250115
  Serious: Yes (Hospitalization)
  Sender: ABBVIE
  Company Number: US-ABBVIE-5622982

PATIENT
  Sex: Male

DRUGS (1)
  1. HUMIRA [Suspect]
     Active Substance: ADALIMUMAB
     Indication: Crohn^s disease
     Dosage: FORM STRENGTH: 40 MILLIGRAM?CF
     Route: 058
     Dates: start: 20230831

REACTIONS (4)
  - Blood iron decreased [Unknown]
  - Anaemia [Recovering/Resolving]
  - Crohn^s disease [Recovering/Resolving]
  - Haemoglobin decreased [Recovering/Resolving]
